FAERS Safety Report 16566597 (Version 1)
Quarter: 2019Q3

REPORT INFORMATION
  Report Type: Spontaneous
  Country: ES (occurrence: ES)
  Receive Date: 20190712
  Receipt Date: 20190712
  Transmission Date: 20191004
  Serious: Yes (Hospitalization)
  Sender: FDA-Public Use
  Company Number: ES-PFIZER INC-2019290880

PATIENT
  Age: 44 Year
  Sex: Male

DRUGS (1)
  1. TRANKIMAZIN RETARD [Suspect]
     Active Substance: ALPRAZOLAM
     Dosage: 20 MG, SINGLE,10 TABLETS
     Route: 048
     Dates: start: 20190416, end: 20190416

REACTIONS (4)
  - Acute kidney injury [Recovered/Resolved]
  - Depressed level of consciousness [Recovered/Resolved]
  - Intentional overdose [Recovered/Resolved]
  - Rhabdomyolysis [Recovered/Resolved]

NARRATIVE: CASE EVENT DATE: 20190416
